FAERS Safety Report 8908683 (Version 1)
Quarter: 2012Q4

REPORT INFORMATION
  Report Type: 
  Country: US (occurrence: US)
  Receive Date: 20121113
  Receipt Date: 20121113
  Transmission Date: 20130627
  Serious: No
  Sender: FDA-Public Use
  Company Number: US-AMGEN-USASP2012009691

PATIENT
  Age: 67 Year
  Sex: Female

DRUGS (3)
  1. ENBREL [Suspect]
     Indication: RHEUMATOID ARTHRITIS
     Dosage: 50 mg, qwk
     Dates: start: 20110601
  2. ENBREL [Suspect]
  3. METHOTREXATE [Concomitant]
     Dosage: UNK

REACTIONS (10)
  - Toothache [Not Recovered/Not Resolved]
  - Synovial cyst [Recovered/Resolved]
  - Joint swelling [Not Recovered/Not Resolved]
  - Arthralgia [Not Recovered/Not Resolved]
  - Arthritis [Recovered/Resolved]
  - Joint effusion [Not Recovered/Not Resolved]
  - Joint warmth [Recovered/Resolved]
  - Histoplasmosis [Not Recovered/Not Resolved]
  - Tooth infection [Not Recovered/Not Resolved]
  - Injection site pain [Not Recovered/Not Resolved]
